FAERS Safety Report 8791230 (Version 1)
Quarter: 2012Q4

REPORT INFORMATION
  Report Type: Spontaneous
  Country: US (occurrence: None)
  Receive Date: 20120913
  Receipt Date: 20120913
  Transmission Date: 20130627
  Serious: Yes (Death, Life-Threatening, Hospitalization, Disabling, Other)
  Sender: FDA-Public Use
  Company Number: None

PATIENT
  Sex: Male
  Weight: 90.72 kg

DRUGS (2)
  1. SIMVASTATIN [Suspect]
     Indication: THROMBOTIC THROMBOCYTOPENIC PURPURA
     Dosage: 80 mg. 1 daily
     Dates: start: 2011
  2. AMLODPINE [Suspect]
     Indication: THROMBOTIC THROMBOCYTOPENIC PURPURA
     Dosage: 10 mg 1 daily
     Dates: start: 2011

REACTIONS (4)
  - Renal failure [None]
  - Brain injury [None]
  - Cardiac failure [None]
  - Incorrect dose administered [None]
